FAERS Safety Report 9500895 (Version 1)
Quarter: 2013Q1

REPORT INFORMATION
  Report Type: Spontaneous
  Country: US (occurrence: None)
  Receive Date: 20130109
  Receipt Date: 20130109
  Transmission Date: 20140127
  Serious: Yes (Other)
  Sender: FDA-Public Use
  Company Number: FK201201531

PATIENT
  Age: 67 Year
  Sex: Female
  Weight: 75.3 kg

DRUGS (1)
  1. PACLITAXEL [Suspect]
     Indication: OVARIAN CANCER RECURRENT
     Route: 042
     Dates: start: 20120524, end: 20120524

REACTIONS (4)
  - Hypersensitivity [None]
  - Blood pressure increased [None]
  - Back pain [None]
  - Anxiety [None]
